FAERS Safety Report 24674370 (Version 1)
Quarter: 2024Q4

REPORT INFORMATION
  Report Type: Spontaneous
  Country: KR (occurrence: KR)
  Receive Date: 20241128
  Receipt Date: 20241128
  Transmission Date: 20250115
  Serious: No
  Sender: ASTELLAS
  Company Number: KR-ASTELLAS-2024-AER-020824

PATIENT
  Sex: Female

DRUGS (3)
  1. VESICARE [Suspect]
     Active Substance: SOLIFENACIN SUCCINATE
     Indication: Product used for unknown indication
     Route: 065
     Dates: start: 20240511, end: 20240514
  2. DEXIBUPROFEN [Suspect]
     Active Substance: DEXIBUPROFEN
     Indication: Cystitis
     Route: 065
     Dates: start: 20240511, end: 20240514
  3. AMOXICILLIN\CLAVULANATE POTASSIUM [Suspect]
     Active Substance: AMOXICILLIN\CLAVULANATE POTASSIUM
     Indication: Cystitis
     Route: 065
     Dates: start: 20240511, end: 20240514

REACTIONS (2)
  - Diarrhoea [Recovered/Resolved]
  - Wrong technique in product usage process [Unknown]

NARRATIVE: CASE EVENT DATE: 20240511
